FAERS Safety Report 6740284-8 (Version None)
Quarter: 2010Q2

REPORT INFORMATION
  Report Type: 
  Country: None (occurrence: None)
  Receive Date: 20100525
  Receipt Date: 20100520
  Transmission Date: 20101027
  Serious: Yes (Other)
  Sender: FDA-Public Use
  Company Number: US-MERCK-1004USA04562

PATIENT
  Age: 47 Year
  Sex: Female

DRUGS (4)
  1. EMEND [Suspect]
     Indication: PROPHYLAXIS OF NAUSEA AND VOMITING
     Route: 048
     Dates: start: 20100419
  2. EMEND [Suspect]
     Route: 048
     Dates: start: 20100401, end: 20100427
  3. ANTINEOPLASTIC (UNSPECIFIED) [Concomitant]
     Route: 065
  4. COMPAZINE [Suspect]
     Route: 065

REACTIONS (3)
  - DRUG INTERACTION [None]
  - INCORRECT DRUG ADMINISTRATION DURATION [None]
  - TARDIVE DYSKINESIA [None]
